FAERS Safety Report 6657573-8 (Version None)
Quarter: 2010Q1

REPORT INFORMATION
  Report Type: 
  Country: None (occurrence: None)
  Receive Date: 20100326
  Receipt Date: 20100310
  Transmission Date: 20100710
  Serious: Yes (Death)
  Sender: FDA-Public Use
  Company Number: ADR-5031-004

PATIENT
  Age: 68 Year
  Sex: Male
  Weight: 133.8111 kg

DRUGS (7)
  1. TORSEMIDE TABLETS, 20 MG /INVAGEN, INC. [Suspect]
     Indication: DIURETIC THERAPY
     Dosage: 1/DAY, ORAL
     Route: 048
     Dates: start: 20100306
  2. TORSEMIDE TABLETS, 20 MG /INVAGEN, INC. [Suspect]
     Indication: HYPERTENSION
     Dosage: 1/DAY, ORAL
     Route: 048
     Dates: start: 20100306
  3. AMLODIPINE [Concomitant]
  4. DOXYCYCLINE [Concomitant]
  5. CIALIS [Concomitant]
  6. BENADRYL [Concomitant]
  7. BUTALBITAL [Concomitant]

REACTIONS (3)
  - ANAPHYLACTIC SHOCK [None]
  - FALL [None]
  - PRURITUS [None]
